FAERS Safety Report 4939323-6 (Version None)
Quarter: 2006Q1

REPORT INFORMATION
  Report Type: 
  Country: None (occurrence: None)
  Receive Date: 20060306
  Receipt Date: 20060223
  Transmission Date: 20060701
  Serious: Yes (Death, Other)
  Sender: FDA-Public Use
  Company Number: 2005-11-0109

PATIENT
  Age: 57 Year
  Sex: Male

DRUGS (8)
  1. PEG-INTRON [Suspect]
     Indication: HEPATITIS C
     Dosage: 150 UG QW SUBCUTANEOUS
     Route: 058
     Dates: start: 20050602
  2. RIBAVIRIN [Suspect]
     Indication: HEPATITIS C
     Dosage: 1200 MG QD ORAL
     Route: 048
     Dates: start: 20050602
  3. METHADONE [Concomitant]
  4. LOSEC [Concomitant]
  5. IMOVANE [Concomitant]
  6. CELEXA [Concomitant]
  7. CLONIDINE [Concomitant]
  8. VALIUM [Concomitant]

REACTIONS (3)
  - ARTERIOSCLEROSIS [None]
  - HEPATIC CIRRHOSIS [None]
  - OSTEOPOROSIS [None]
